FAERS Safety Report 16680903 (Version 1)
Quarter: 2019Q3

REPORT INFORMATION
  Report Type: Report from Study
  Country: US (occurrence: US)
  Receive Date: 20190808
  Receipt Date: 20190808
  Transmission Date: 20191004
  Serious: Yes (Other)
  Sender: FDA-Public Use
  Company Number: US-BEH-2019105229

PATIENT
  Age: 60 Year
  Sex: Female
  Weight: 60.77 kg

DRUGS (1)
  1. HIZENTRA [Suspect]
     Active Substance: HUMAN IMMUNOGLOBULIN G
     Dosage: UNK
     Route: 065

REACTIONS (10)
  - Headache [Unknown]
  - Throat tightness [Unknown]
  - Abdominal distension [Unknown]
  - Pharyngeal swelling [Unknown]
  - Nausea [Unknown]
  - Infusion site erythema [Unknown]
  - Insomnia [Unknown]
  - Decreased appetite [Unknown]
  - Infusion site pruritus [Unknown]
  - Retinal migraine [Unknown]

NARRATIVE: CASE EVENT DATE: 20190531
